FAERS Safety Report 10654967 (Version 1)
Quarter: 2014Q4

REPORT INFORMATION
  Report Type: Spontaneous
  Country: US (occurrence: US)
  Receive Date: 20141216
  Receipt Date: 20141216
  Transmission Date: 20150529
  Serious: No
  Sender: FDA-Public Use
  Company Number: US-PFIZER INC-2014343843

PATIENT
  Age: 53 Year
  Sex: Female

DRUGS (1)
  1. XELJANZ [Suspect]
     Active Substance: TOFACITINIB CITRATE
     Dosage: 5MG TWICE DAILY
     Route: 048
     Dates: start: 20141102, end: 20141204

REACTIONS (5)
  - Fatigue [Unknown]
  - Headache [Unknown]
  - Abdominal pain [Unknown]
  - Dyspnoea [Unknown]
  - Heart rate increased [Unknown]
